FAERS Safety Report 6079978-9 (Version None)
Quarter: 2009Q1

REPORT INFORMATION
  Report Type: 
  Country: None (occurrence: None)
  Receive Date: 20090217
  Receipt Date: 20081118
  Transmission Date: 20090719
  Serious: No
  Sender: FDA-Public Use
  Company Number: A0757034A

PATIENT
  Age: 68 Year
  Sex: Female

DRUGS (2)
  1. COREG CR [Suspect]
     Indication: HYPERTENSION
     Dosage: 40MG AT NIGHT
     Route: 048
     Dates: start: 20081113
  2. NO CONCURRENT MEDICATION [Concomitant]

REACTIONS (7)
  - DISSOCIATION [None]
  - DIZZINESS [None]
  - FEELING ABNORMAL [None]
  - HYPERHIDROSIS [None]
  - HYPOTENSION [None]
  - THERMAL BURN [None]
  - THINKING ABNORMAL [None]
